FAERS Safety Report 7682650 (Version 7)
Quarter: 2025Q1

REPORT INFORMATION
  Report Type: Spontaneous
  Country: US (occurrence: US)
  Receive Date: 20101124
  Receipt Date: 20250304
  Transmission Date: 20250409
  Serious: Yes (Hospitalization, Other)
  Sender: PFIZER
  Company Number: US-AMGEN-USASP2010013392

PATIENT
  Age: 43 Year
  Sex: Female

DRUGS (7)
  1. ENBREL [Suspect]
     Active Substance: ETANERCEPT
     Dosage: 25 MG, 2X/WEEK
     Route: 058
     Dates: end: 201011
  2. ENBREL [Suspect]
     Active Substance: ETANERCEPT
     Dates: start: 201012
  3. NORVASC [Suspect]
     Active Substance: AMLODIPINE BESYLATE
     Dates: end: 2010
  4. CELLCEPT [Suspect]
     Active Substance: MYCOPHENOLATE MOFETIL
     Dates: end: 2010
  5. METHYLDOPA [Suspect]
     Active Substance: METHYLDOPA
     Indication: Hypertension
     Dosage: 250 MG, 3X/DAY
     Route: 048
     Dates: start: 2010
  6. VITAMINS [Concomitant]
     Active Substance: VITAMINS
  7. FISH OIL [Concomitant]
     Active Substance: FISH OIL

REACTIONS (6)
  - Failed induction of labour [Unknown]
  - Gestational diabetes [Unknown]
  - Psoriasis [Unknown]
  - Lactation insufficiency [Not Recovered/Not Resolved]
  - Incision site haematoma [Recovering/Resolving]
  - Exposure during pregnancy [Unknown]

NARRATIVE: CASE EVENT DATE: 20100101
